FAERS Safety Report 9656166 (Version 4)
Quarter: 2014Q2

REPORT INFORMATION
  Report Type: Spontaneous
  Country: US (occurrence: US)
  Receive Date: 20131030
  Receipt Date: 20140501
  Transmission Date: 20141212
  Serious: No
  Sender: FDA-Public Use
  Company Number: US-PFIZER INC-2012295257

PATIENT
  Age: 63 Year
  Sex: Female
  Weight: 86.17 kg

DRUGS (16)
  1. LYRICA [Suspect]
     Indication: DIABETIC NEUROPATHY
     Dosage: 75 MG, 2X/DAY
     Dates: start: 2012, end: 20131020
  2. LYRICA [Suspect]
     Indication: FIBROMYALGIA
     Dosage: 100 MG, 2X/DAY
     Route: 048
  3. LOSARTAN [Concomitant]
     Indication: HYPERTENSION
     Dosage: 100 MG, 1X/DAY
  4. INSULIN [Concomitant]
     Indication: DIABETES MELLITUS
     Dosage: 65IU IN THE MORNING AND 30IU AT NIGHT, 2X/DAY
  5. IMURAN [Concomitant]
     Dosage: UNK
  6. COREG [Concomitant]
     Dosage: UNK
  7. K-TAB [Concomitant]
     Dosage: UNK
  8. HCTZ [Concomitant]
     Dosage: UNK
  9. HUMULIN 70/30 [Concomitant]
     Dosage: UNK
  10. NOVOLIN N [Concomitant]
     Dosage: UNK
  11. COZAAR [Concomitant]
     Dosage: UNK
  12. MAGNESIUM [Concomitant]
     Dosage: UNK
  13. NASONEX [Concomitant]
     Dosage: UNK
  14. PRILOSEC [Concomitant]
     Dosage: UNK
  15. PAXIL [Concomitant]
     Dosage: UNK
  16. PRAVACOL [Concomitant]
     Dosage: UNK

REACTIONS (1)
  - Fibromyalgia [Unknown]
